FAERS Safety Report 9171779 (Version 1)
Quarter: 2013Q1

REPORT INFORMATION
  Report Type: Spontaneous
  Country: FR (occurrence: FR)
  Receive Date: 20130319
  Receipt Date: 20130319
  Transmission Date: 20140127
  Serious: Yes (Hospitalization)
  Sender: FDA-Public Use
  Company Number: PHHY2013FR025190

PATIENT
  Age: 11 Year
  Sex: Female

DRUGS (4)
  1. EXJADE [Suspect]
     Indication: THALASSAEMIA BETA
     Dosage: UNK
     Route: 048
     Dates: start: 200612, end: 200809
  2. EXJADE [Suspect]
     Dosage: UNK
     Dates: start: 200908, end: 201007
  3. EXJADE [Suspect]
     Dosage: UNK
     Dates: start: 201101
  4. ORACILLINE [Concomitant]

REACTIONS (2)
  - Nephrolithiasis [Not Recovered/Not Resolved]
  - Urine calcium increased [Unknown]
